FAERS Safety Report 8316831-1 (Version None)
Quarter: 2012Q2

REPORT INFORMATION
  Report Type: 
  Country: None (occurrence: None)
  Receive Date: 20120425
  Receipt Date: 20120423
  Transmission Date: 20120825
  Serious: Yes (Other)
  Sender: FDA-Public Use
  Company Number: ADR-2010-7957

PATIENT
  Sex: Male

DRUGS (2)
  1. LIORESAL [Suspect]
     Indication: MUSCLE SPASTICITY
     Dosage: UNK MCG, DAILY, INTRATH
     Route: 037
  2. LIORESAL [Suspect]
     Indication: MULTIPLE SCLEROSIS
     Dosage: UNK MCG, DAILY, INTRATH
     Route: 037

REACTIONS (5)
  - WHEELCHAIR USER [None]
  - NERVE INJURY [None]
  - BURNING SENSATION [None]
  - DRUG INEFFECTIVE [None]
  - IMPLANT SITE PAIN [None]
